FAERS Safety Report 4449024-9 (Version None)
Quarter: 2004Q3

REPORT INFORMATION
  Report Type: 
  Country: None (occurrence: None)
  Receive Date: 20040910
  Receipt Date: 20040831
  Transmission Date: 20050211
  Serious: Yes (Death, Other)
  Sender: FDA-Public Use
  Company Number: CN-JNJFOC-20040901016

PATIENT
  Age: 13 Year

DRUGS (1)
  1. ACETAMINOPHEN [Suspect]

REACTIONS (5)
  - ARGININOSUCCINATE SYNTHETASE DEFICIENCY [None]
  - CONVULSION [None]
  - HEADACHE [None]
  - LETHARGY [None]
  - MOVEMENT DISORDER [None]
